FAERS Safety Report 5346148-9 (Version None)
Quarter: 2007Q2

REPORT INFORMATION
  Report Type: 
  Country: None (occurrence: None)
  Receive Date: 20070605
  Receipt Date: 20070525
  Transmission Date: 20071010
  Serious: Yes (Other)
  Sender: FDA-Public Use
  Company Number: CA-JNJFOC-20070506346

PATIENT
  Age: 2 Year
  Sex: Male
  Weight: 14 kg

DRUGS (3)
  1. TYLENOL (CAPLET) [Suspect]
  2. TYLENOL (CAPLET) [Suspect]
     Indication: RHINORRHOEA
  3. TRIAMINIC SRT [Suspect]
     Indication: RHINORRHOEA
     Dosage: ^CORRECT^ DOSAGE, AND THEN DRANK HALF A BOTTLE (ABOUT 50 ML)
     Route: 048

REACTIONS (3)
  - ACCIDENTAL DRUG INTAKE BY CHILD [None]
  - DRUG ADMINISTRATION ERROR [None]
  - SOMNOLENCE [None]
